FAERS Safety Report 24080201 (Version 3)
Quarter: 2024Q3

REPORT INFORMATION
  Report Type: Spontaneous
  Country: CR (occurrence: CR)
  Receive Date: 20240711
  Receipt Date: 20240724
  Transmission Date: 20241016
  Serious: Yes (Other)
  Sender: SANOFI AVENTIS
  Company Number: CR-SA-SAC20240706000017

PATIENT
  Age: 57 Year
  Sex: Female
  Weight: 77.1 kg

DRUGS (43)
  1. LEMTRADA [Suspect]
     Active Substance: ALEMTUZUMAB
     Indication: Multiple sclerosis
     Dosage: 3 DF, QD
     Route: 042
     Dates: start: 20240610, end: 20240612
  2. LEMTRADA [Suspect]
     Active Substance: ALEMTUZUMAB
     Dosage: 3 DF, QD
     Route: 042
     Dates: start: 201801, end: 2018
  3. LEMTRADA [Suspect]
     Active Substance: ALEMTUZUMAB
     Dosage: 3 DF, QD
     Route: 042
     Dates: start: 201903, end: 2019
  4. LEMTRADA [Suspect]
     Active Substance: ALEMTUZUMAB
     Dosage: 3 VIALS SOLUTION EVERY CYCLE
     Route: 041
     Dates: start: 201801
  5. LEMTRADA [Suspect]
     Active Substance: ALEMTUZUMAB
     Dosage: 3 VIALS SOLUTION EVERY CYCLE
     Route: 041
  6. LEMTRADA [Suspect]
     Active Substance: ALEMTUZUMAB
     Dosage: 3 VIALS SOLUTION EVERY CYCLE
     Route: 041
     Dates: start: 20240610, end: 20240614
  7. LYRICA [Concomitant]
     Active Substance: PREGABALIN
     Indication: Pain
     Dosage: 2 TABLETS, 24 H BEFORE GOING TO SLEEP
     Route: 048
  8. LEVOTHYROXINE SODIUM [Concomitant]
     Active Substance: LEVOTHYROXINE SODIUM
     Indication: Thyroid disorder
     Dosage: 1 TABLET. 24 H BEFORE BREAKFAST
     Route: 048
  9. CRESTOR [Concomitant]
     Active Substance: ROSUVASTATIN CALCIUM
     Dosage: 1 TABLET, 24 H AFTER BREAKFAST
     Route: 048
  10. CYMBALTA [Concomitant]
     Active Substance: DULOXETINE HYDROCHLORIDE
     Indication: Pain
     Dosage: 10 MG (1 TABLET), 24 H AFTER LUNCH
     Route: 048
  11. TEGRETOL XR [Concomitant]
     Active Substance: CARBAMAZEPINE
     Indication: Seizure
     Dosage: 1 TABLET. 8 H AFTER BREAKFAST AND AFTER DINNER
     Route: 048
  12. MYSOLINE [Concomitant]
     Active Substance: PRIMIDONE
     Indication: Seizure
     Dosage: 1 TABLET, 24 H AFTER DINNER
     Route: 048
  13. VITAMIN B6 [Concomitant]
     Active Substance: PYRIDOXINE HYDROCHLORIDE
     Indication: Vitamin supplementation
     Dosage: 24 H BEFORE BREAKFAST
  14. PROEFA 3 6 9 [Concomitant]
     Dosage: 24 H AFTER BREAKFAST
     Route: 048
  15. BIOTIN [Concomitant]
     Active Substance: BIOTIN
     Indication: Vitamin supplementation
     Dosage: 24 H AFTER BREAKFAST
     Route: 048
  16. BENFOTIAMINE [Concomitant]
     Active Substance: BENFOTIAMINE
     Dosage: 24 H AFTER BREAKFAST
     Route: 048
  17. CITRAGEL [Concomitant]
     Dosage: 24 H AFTER LUNCH
     Route: 048
  18. FERRIC CARBOXYMALTOSE [Concomitant]
     Active Substance: FERRIC CARBOXYMALTOSE
     Dosage: 24 H AFTER BREAKFAST
     Route: 048
  19. CISTICRAN NOX [Concomitant]
     Dosage: 24 H AFTER BREAKFAST
     Route: 048
  20. DIETARY SUPPLEMENT\RESVERATROL [Concomitant]
     Active Substance: DIETARY SUPPLEMENT\RESVERATROL
     Dosage: 24 H AFTER LUNCH
     Route: 048
  21. ZINC [Concomitant]
     Active Substance: ZINC
     Indication: Mineral supplementation
     Dosage: 24 H
     Route: 048
  22. VALTREX [Concomitant]
     Active Substance: VALACYCLOVIR HYDROCHLORIDE
     Dosage: 1 MG, 24 H (FOR 2 YEARS)
  23. BACTRIM DS [Concomitant]
     Active Substance: SULFAMETHOXAZOLE\TRIMETHOPRIM
     Dosage: 1 DF, 24 H (FOR 12 WEEKS)
  24. DIFLUCAN [Concomitant]
     Active Substance: FLUCONAZOLE
     Dosage: 150 MG, WEEKLY (FOR 12 WEEKS)
  25. SHINGRIX [Concomitant]
     Active Substance: RECOMBINANT VARICELLA ZOSTER VIRUS (VZV) GLYCOPROTEIN E
     Indication: Immunisation
  26. PREVNAR [Concomitant]
     Active Substance: PNEUMOCOCCAL 7-VALENT CONJUGATE VACCINE (DIPHTHERIA CRM197 PROTEIN)
     Indication: Immunisation
  27. ZYRTEC [Concomitant]
     Active Substance: CETIRIZINE HYDROCHLORIDE
     Indication: Premedication
  28. DIPHENHYDRAMINE [Concomitant]
     Active Substance: DIPHENHYDRAMINE
     Indication: Premedication
     Dosage: 25-50MG, BEFORE EACH INFUSION WITH LEMTRADA
  29. SOLU-MEDROL [Concomitant]
     Active Substance: METHYLPREDNISOLONE SODIUM SUCCINATE
     Indication: Premedication
     Route: 042
  30. ASCORBIC ACID [Concomitant]
     Active Substance: ASCORBIC ACID
     Indication: Supplementation therapy
     Dosage: 24 H AFTER LUNCH
     Route: 048
  31. MAGNESIUM [Concomitant]
     Active Substance: MAGNESIUM
     Indication: Mineral supplementation
     Dosage: 24 H AFTER LUNCH
     Route: 048
  32. URGINAL UD [Concomitant]
     Dosage: 24 H AFTER LUNCH
     Route: 048
  33. DIPHTHERIA AND TETANUS TOXOIDS AND ACELLULAR PERTUSSIS VACCINE ADSORBE [Concomitant]
     Active Substance: DIPHTHERIA AND TETANUS TOXOIDS AND ACELLULAR PERTUSSIS VACCINE ADSORBED
     Indication: Immunisation
  34. COVID-19 VACCINE [Concomitant]
     Indication: Immunisation
  35. HUMAN PAPILLOMAVIRUS QUADRIVALENT (TYPES 6, 11, 16, AND 18) VACCINE, R [Concomitant]
     Active Substance: HUMAN PAPILLOMAVIRUS QUADRIVALENT (TYPES 6, 11, 16, AND 18) VACCINE, RECOMBINANT
     Indication: Immunisation
  36. PNEUMOVAX 23 [Concomitant]
     Active Substance: PNEUMOCOCCAL VACCINE, POLYVALENT 23
     Indication: Immunisation
  37. DEXAMETHASONE [Concomitant]
     Active Substance: DEXAMETHASONE
     Indication: Premedication
     Dosage: 4 MG EVERY 24 HOURS
  38. DEXAMETHASONE [Concomitant]
     Active Substance: DEXAMETHASONE
     Dosage: 4 MG EVERY 24 HOURS
  39. CALCITRIOL [Concomitant]
     Active Substance: CALCITRIOL
  40. PRIMIDONE [Concomitant]
     Active Substance: PRIMIDONE
  41. PYRIDOXINE [Concomitant]
     Active Substance: PYRIDOXINE
  42. VIRENTEL [Concomitant]
  43. CRANBERRY JUICE CONCENTRATE [Concomitant]
     Dosage: 24 H AFTER BREAKFAST
     Route: 048

REACTIONS (28)
  - Dysstasia [Recovered/Resolved]
  - Thrombocytosis [Unknown]
  - Tremor [Recovering/Resolving]
  - Mydriasis [Recovering/Resolving]
  - Somnolence [Recovering/Resolving]
  - Condition aggravated [Recovering/Resolving]
  - Muscle spasticity [Recovering/Resolving]
  - Lethargy [Recovering/Resolving]
  - Confusional state [Recovering/Resolving]
  - Peripheral coldness [Unknown]
  - Livedo reticularis [Unknown]
  - Decubitus ulcer [Unknown]
  - Muscular weakness [Unknown]
  - Oedema peripheral [Unknown]
  - Hyponatraemia [Unknown]
  - Lymphopenia [Unknown]
  - Ear infection [Recovering/Resolving]
  - Ear pain [Recovering/Resolving]
  - Ear swelling [Recovering/Resolving]
  - Diarrhoea [Unknown]
  - Blood pressure increased [Unknown]
  - Heart rate increased [Unknown]
  - Oxygen saturation decreased [Unknown]
  - Urinary tract infection [Recovering/Resolving]
  - Urinary incontinence [Recovering/Resolving]
  - Proteus test positive [Recovering/Resolving]
  - Dysuria [Recovering/Resolving]
  - Urinary sediment present [Recovering/Resolving]

NARRATIVE: CASE EVENT DATE: 20240601
